FAERS Safety Report 21778563 (Version 1)
Quarter: 2022Q4

REPORT INFORMATION
  Report Type: Spontaneous
  Country: CN (occurrence: CN)
  Receive Date: 20221226
  Receipt Date: 20221226
  Transmission Date: 20230112
  Serious: Yes (Life-Threatening, Other)
  Sender: FDA-Public Use
  Company Number: CN-009507513-2212CHN008125

PATIENT
  Age: 49 Year
  Sex: Female
  Weight: 73 kg

DRUGS (2)
  1. CILASTATIN SODIUM\IMIPENEM [Suspect]
     Active Substance: CILASTATIN SODIUM\IMIPENEM
     Indication: Septic shock
     Dosage: 0.5 G Q6H, ACCOMPANY WITH SODIUM CHLORIDE INJECTION 50ML PUMPED WITH SPEED OF ABOUT 30ML/MIN
     Dates: start: 20221019, end: 20221021
  2. SODIUM CHLORIDE [Concomitant]
     Active Substance: SODIUM CHLORIDE
     Dosage: 50 ML, 0.5 G Q6H, ACCOMPANY WITH TIENAM PUMPED WITH SPEED OF ABOUT 30ML/MIN
     Dates: start: 20221019, end: 20221021

REACTIONS (7)
  - Chills [Recovering/Resolving]
  - Chest discomfort [Recovering/Resolving]
  - Dyspnoea [Recovering/Resolving]
  - Discomfort [Recovering/Resolving]
  - Blood pressure abnormal [Recovering/Resolving]
  - Body temperature abnormal [Recovering/Resolving]
  - Heart rate abnormal [Recovering/Resolving]

NARRATIVE: CASE EVENT DATE: 20221020
